FAERS Safety Report 8383990-4 (Version None)
Quarter: 2012Q2

REPORT INFORMATION
  Report Type: 
  Country: None (occurrence: None)
  Receive Date: 20120524
  Receipt Date: 20120513
  Transmission Date: 20120825
  Serious: Yes (Other)
  Sender: FDA-Public Use
  Company Number: US-WATSON-2012-08659

PATIENT
  Age: 6 Year
  Sex: Male

DRUGS (3)
  1. GEMCITABINE [Suspect]
     Indication: HEPATOBLASTOMA
     Dosage: 1000 MG/M2, UNKNOWN
     Route: 065
  2. OXALIPLATIN [Suspect]
     Indication: HEPATOBLASTOMA
     Dosage: 85 MG/M2, UNK
     Route: 065
  3. BEVACIZUMAB [Suspect]
     Indication: HEPATOBLASTOMA
     Dosage: 5 MG/KG,  EVERY 2 WEEKS
     Route: 065

REACTIONS (1)
  - POSTERIOR REVERSIBLE ENCEPHALOPATHY SYNDROME [None]
